FAERS Safety Report 10411032 (Version 1)
Quarter: 2014Q3

REPORT INFORMATION
  Report Type: Spontaneous
  Country: US (occurrence: None)
  Receive Date: 20140822
  Receipt Date: 20140822
  Transmission Date: 20150326
  Serious: Yes (Hospitalization)
  Sender: FDA-Public Use
  Company Number: 2489028

PATIENT
  Age: 62 Year
  Sex: Female

DRUGS (2)
  1. INSULIN REGULAR [Suspect]
     Active Substance: INSULIN NOS
     Indication: BLOOD GLUCOSE INCREASED
     Dates: start: 20140721
  2. SODIUM CHLORIDE 0.9% INJECTION, USP (SODIUM CHLORIDE) [Suspect]
     Active Substance: SODIUM CHLORIDE
     Indication: MEDICATION DILUTION
     Route: 042
     Dates: start: 20140721

REACTIONS (5)
  - Incorrect drug administration rate [None]
  - Blood glucose decreased [None]
  - Medication error [None]
  - Blood glucose increased [None]
  - Device malfunction [None]

NARRATIVE: CASE EVENT DATE: 20140721
